FAERS Safety Report 7973678-3 (Version None)
Quarter: 2011Q4

REPORT INFORMATION
  Report Type: 
  Country: None (occurrence: None)
  Receive Date: 20111213
  Receipt Date: 20111206
  Transmission Date: 20120403
  Serious: Yes (Death, Other)
  Sender: FDA-Public Use
  Company Number: GB-ELI_LILLY_AND_COMPANY-GB201110001944

PATIENT
  Age: 75 Year
  Sex: Male
  Weight: 82 kg

DRUGS (6)
  1. PEMETREXED [Suspect]
     Indication: MESOTHELIOMA
     Dosage: 1000 MG, UNK
     Route: 042
     Dates: start: 20110603, end: 20110603
  2. FOLIC ACID [Concomitant]
  3. CISPLATIN [Concomitant]
     Indication: MESOTHELIOMA
     Dosage: 149 MG, UNK
     Route: 042
     Dates: start: 20110603, end: 20110603
  4. SIMVASTATIN [Concomitant]
  5. VITAMIN B-12 [Concomitant]
  6. BENDROFLUMETHIAZIDE [Concomitant]

REACTIONS (4)
  - MYOCARDIAL ISCHAEMIA [None]
  - NEOPLASM PROGRESSION [None]
  - MYOCARDIAL INFARCTION [None]
  - PNEUMONIA [None]
